FAERS Safety Report 17109380 (Version 1)
Quarter: 2019Q4

REPORT INFORMATION
  Report Type: Report from Study
  Country: US (occurrence: US)
  Receive Date: 20191204
  Receipt Date: 20191204
  Transmission Date: 20200122
  Serious: Yes (Life-Threatening, Other)
  Sender: FDA-Public Use
  Company Number: US-BRISTOL-MYERS SQUIBB COMPANY-BMS-2019-113212

PATIENT
  Age: 46 Year
  Sex: Female
  Weight: 104.32 kg

DRUGS (1)
  1. ABATACEPT [Suspect]
     Active Substance: ABATACEPT
     Indication: RHEUMATOID ARTHRITIS
     Dosage: 125 MILLIGRAM
     Route: 058
     Dates: start: 20191001, end: 20191001

REACTIONS (2)
  - Rash [Unknown]
  - Tuberculosis [Unknown]

NARRATIVE: CASE EVENT DATE: 20191001
